FAERS Safety Report 11123880 (Version 1)
Quarter: 2015Q2

REPORT INFORMATION
  Report Type: Spontaneous
  Country: US (occurrence: US)
  Receive Date: 20150520
  Receipt Date: 20150520
  Transmission Date: 20150821
  Serious: No
  Sender: FDA-Public Use
  Company Number: US-TEVA-535400USA

PATIENT
  Sex: Male

DRUGS (1)
  1. NABUMETONE. [Suspect]
     Active Substance: NABUMETONE
     Indication: ARTHRITIS
     Dates: start: 20150115, end: 20150116

REACTIONS (1)
  - Hiccups [Unknown]
